FAERS Safety Report 7067798-8 (Version None)
Quarter: 2010Q4

REPORT INFORMATION
  Report Type: 
  Country: None (occurrence: None)
  Receive Date: 20101028
  Receipt Date: 20101014
  Transmission Date: 20110411
  Serious: Yes (Other)
  Sender: FDA-Public Use
  Company Number: PHHY2010ZA69366

PATIENT
  Sex: Male

DRUGS (2)
  1. RITALIN [Suspect]
     Indication: ATTENTION DEFICIT/HYPERACTIVITY DISORDER
     Dosage: UNK,
     Route: 048
     Dates: start: 20101011
  2. RITALIN [Suspect]
     Dosage: 10MG, HALF TABLET PER DAY
     Route: 048
     Dates: start: 20101014

REACTIONS (3)
  - EATING DISORDER [None]
  - SPEECH DISORDER [None]
  - VIITH NERVE PARALYSIS [None]
